FAERS Safety Report 6713133-1 (Version None)
Quarter: 2010Q2

REPORT INFORMATION
  Report Type: 
  Country: None (occurrence: None)
  Receive Date: 20100506
  Receipt Date: 20100421
  Transmission Date: 20101027
  Serious: Yes (Other)
  Sender: FDA-Public Use
  Company Number: PHEH2006US10883

PATIENT
  Sex: Male

DRUGS (2)
  1. ZOMETA [Suspect]
  2. THALIDOMIDE [Concomitant]

REACTIONS (14)
  - AMPUTATION [None]
  - ANXIETY [None]
  - CRANIOTOMY [None]
  - DEBRIDEMENT [None]
  - INJURY [None]
  - METASTASES TO CENTRAL NERVOUS SYSTEM [None]
  - ORAL INFECTION [None]
  - ORAL NEOPLASM [None]
  - OSTEITIS [None]
  - OSTEONECROSIS OF JAW [None]
  - PAIN [None]
  - PURULENT DISCHARGE [None]
  - SWELLING [None]
  - TOOTH EXTRACTION [None]
